FAERS Safety Report 5377943-8 (Version None)
Quarter: 2007Q2

REPORT INFORMATION
  Report Type: 
  Country: None (occurrence: None)
  Receive Date: 20070629
  Receipt Date: 20070625
  Transmission Date: 20071010
  Serious: Yes (Other)
  Sender: FDA-Public Use
  Company Number: 015469

PATIENT
  Age: 19 Year
  Sex: Male

DRUGS (1)
  1. CLARAVIS [Suspect]
     Indication: ACNE
     Dosage: 40 MG, QD, ORAL
     Route: 048
     Dates: start: 20061219, end: 20070226

REACTIONS (1)
  - LEUKAEMIA [None]
